FAERS Safety Report 26028528 (Version 1)
Quarter: 2025Q4

REPORT INFORMATION
  Report Type: Report from Study
  Country: US (occurrence: US)
  Receive Date: 20251111
  Receipt Date: 20251111
  Transmission Date: 20260118
  Serious: Yes (Hospitalization)
  Sender: ABBVIE
  Company Number: US-ABBVIE-6537196

PATIENT
  Age: 36 Year
  Sex: Female

DRUGS (1)
  1. CREON [Suspect]
     Active Substance: PANCRELIPASE AMYLASE\PANCRELIPASE LIPASE\PANCRELIPASE PROTEASE
     Indication: Pancreatic failure
     Route: 048
     Dates: start: 2023, end: 202509

REACTIONS (3)
  - Diabetes mellitus [Unknown]
  - Weight decreased [Recovering/Resolving]
  - Pancreatic disorder [Unknown]

NARRATIVE: CASE EVENT DATE: 20250101
